FAERS Safety Report 4747308-8 (Version None)
Quarter: 2005Q3

REPORT INFORMATION
  Report Type: 
  Country: None (occurrence: None)
  Receive Date: 20050816
  Receipt Date: 20050808
  Transmission Date: 20060218
  Serious: Yes (Other)
  Sender: FDA-Public Use
  Company Number: 200511798BCC

PATIENT
  Sex: Female
  Weight: 61.2356 kg

DRUGS (2)
  1. ALEVE [Suspect]
     Indication: ARTHRALGIA
     Dosage: 440  MG, QD, ORAL   A FEW MONTHS
     Route: 048
  2. HIGH BLOOD PRESSURE MEDICATION [Concomitant]

REACTIONS (1)
  - BLOOD PRESSURE INCREASED [None]
